FAERS Safety Report 5029293-7 (Version None)
Quarter: 2006Q2

REPORT INFORMATION
  Report Type: 
  Country: None (occurrence: None)
  Receive Date: 20060619
  Receipt Date: 20060609
  Transmission Date: 20061013
  Serious: Yes (Hospitalization)
  Sender: FDA-Public Use
  Company Number: AU-ABBOTT-06P-008-0335562-00

PATIENT
  Sex: Female
  Weight: 88 kg

DRUGS (2)
  1. REDUCTIL 10MG [Suspect]
     Indication: DRUG USE FOR UNKNOWN INDICATION
     Route: 048
  2. REDUCTIL 10MG [Suspect]
     Route: 048
     Dates: start: 20040710, end: 20041015

REACTIONS (1)
  - HAEMATOMA [None]
